FAERS Safety Report 24943500 (Version 2)
Quarter: 2025Q1

REPORT INFORMATION
  Report Type: Spontaneous
  Country: FR (occurrence: FR)
  Receive Date: 20250207
  Receipt Date: 20250318
  Transmission Date: 20250409
  Serious: No
  Sender: JOHNSON AND JOHNSON
  Company Number: FR-JNJFOC-20250155781

PATIENT
  Age: 71 Year
  Sex: Female

DRUGS (1)
  1. TREMFYA [Suspect]
     Active Substance: GUSELKUMAB
     Indication: Psoriasis
     Route: 065
     Dates: start: 202409

REACTIONS (4)
  - Off label use [Unknown]
  - Product dose omission issue [Unknown]
  - Device deployment issue [Unknown]
  - Rash macular [Unknown]

NARRATIVE: CASE EVENT DATE: 20240901
